FAERS Safety Report 5550950-8 (Version None)
Quarter: 2007Q4

REPORT INFORMATION
  Report Type: 
  Country: None (occurrence: None)
  Receive Date: 20071210
  Receipt Date: 20071123
  Transmission Date: 20080405
  Serious: Yes (Other)
  Sender: FDA-Public Use
  Company Number: S07-GER-06173-01

PATIENT
  Age: 19 Year
  Sex: Female

DRUGS (3)
  1. ESCITALOPRAM [Suspect]
     Dosage: 15 MG QD PO
     Route: 048
  2. ESCITALOPRAM [Suspect]
     Dosage: 10 MG QD PO
     Route: 048
  3. ESCITALOPRAM [Suspect]
     Dosage: 5 MG QD PO
     Route: 048

REACTIONS (9)
  - BLOOD PRESSURE INCREASED [None]
  - EYE DISORDER [None]
  - FEELING ABNORMAL [None]
  - HEART RATE INCREASED [None]
  - MICTURITION FREQUENCY DECREASED [None]
  - RESTLESSNESS [None]
  - THIRST [None]
  - WEIGHT INCREASED [None]
  - WITHDRAWAL SYNDROME [None]
